FAERS Safety Report 9253448 (Version 5)
Quarter: 2013Q3

REPORT INFORMATION
  Report Type: Report from Study
  Country: IN (occurrence: IN)
  Receive Date: 20130425
  Receipt Date: 20130809
  Transmission Date: 20140515
  Serious: Yes (Hospitalization)
  Sender: FDA-Public Use
  Company Number: IN-BIOGENIDEC-2011BI029746

PATIENT
  Age: 50 Year
  Sex: Female
  Weight: 53 kg

DRUGS (12)
  1. BG00012 [Suspect]
     Indication: MULTIPLE SCLEROSIS
     Route: 048
     Dates: start: 20110413, end: 20110804
  2. TELMA-H [Concomitant]
     Indication: HYPERTENSION
     Route: 048
     Dates: start: 20100330
  3. BACLOFEN [Concomitant]
     Indication: NEURALGIA
     Route: 048
     Dates: start: 20100320
  4. MUCAINE [Concomitant]
     Dates: start: 20110810
  5. RETENSE [Concomitant]
     Dates: start: 20110810
  6. SYMBAL [Concomitant]
     Indication: NEURALGIA
     Dates: start: 20110808
  7. ARKAMIN [Concomitant]
     Indication: NEURALGIA
     Route: 048
     Dates: start: 20100219, end: 20110808
  8. ARKAMIN [Concomitant]
     Indication: NEURALGIA
     Dates: start: 20110810
  9. PANTOP [Concomitant]
     Dates: start: 20110810
  10. PREGABLIN [Concomitant]
     Indication: NEURALGIA
     Dates: start: 20110808
  11. COBADEX [Concomitant]
     Dates: start: 20110810
  12. PARAMOL [Concomitant]

REACTIONS (5)
  - Breast cancer [Not Recovered/Not Resolved]
  - Anaemia [Recovered/Resolved]
  - Oral candidiasis [Recovered/Resolved]
  - Pyrexia [Recovered/Resolved]
  - Neutropenia [Recovered/Resolved]
